FAERS Safety Report 8297344-2 (Version None)
Quarter: 2012Q2

REPORT INFORMATION
  Report Type: 
  Country: None (occurrence: None)
  Receive Date: 20120417
  Receipt Date: 20120409
  Transmission Date: 20120825
  Serious: Yes (Other)
  Sender: FDA-Public Use
  Company Number: ADR-2012-00697

PATIENT
  Sex: Female

DRUGS (3)
  1. BACLOFEN [Suspect]
     Indication: POST LAMINECTOMY SYNDROME
  2. BACLOFEN [Suspect]
     Indication: PAIN
  3. HYDROMORPHONE HCL [Concomitant]

REACTIONS (2)
  - IMPLANT SITE EROSION [None]
  - IMPLANT SITE OEDEMA [None]
